FAERS Safety Report 25380052 (Version 2)
Quarter: 2025Q2

REPORT INFORMATION
  Report Type: Spontaneous
  Country: IT (occurrence: IT)
  Receive Date: 20250530
  Receipt Date: 20250605
  Transmission Date: 20250717
  Serious: Yes (Life-Threatening)
  Sender: AMERICAN REGENT
  Company Number: IT-AMERICAN REGENT INC-2025002169

PATIENT
  Age: 92 Year
  Sex: Male

DRUGS (3)
  1. FERINJECT [Suspect]
     Active Substance: FERRIC CARBOXYMALTOSE
     Indication: Anaemia
     Route: 042
     Dates: start: 20240410, end: 20240410
  2. ASPIRIN LYSINE [Concomitant]
     Active Substance: ASPIRIN LYSINE
     Indication: Product used for unknown indication
     Route: 065
  3. AMLODIPINE BESYLATE [Concomitant]
     Active Substance: AMLODIPINE BESYLATE
     Indication: Product used for unknown indication
     Route: 065

REACTIONS (1)
  - Stevens-Johnson syndrome [Recovered/Resolved]

NARRATIVE: CASE EVENT DATE: 20240411
